FAERS Safety Report 25542847 (Version 1)
Quarter: 2025Q3

REPORT INFORMATION
  Report Type: Spontaneous
  Country: MY (occurrence: MY)
  Receive Date: 20250711
  Receipt Date: 20250711
  Transmission Date: 20251021
  Serious: Yes (Other)
  Sender: MYLAN
  Company Number: MY-MYLANLABS-2025M1058012

PATIENT
  Age: 70 Year
  Sex: Female

DRUGS (12)
  1. ATORVASTATIN [Suspect]
     Active Substance: ATORVASTATIN
     Indication: Dyslipidaemia
  2. ATORVASTATIN [Suspect]
     Active Substance: ATORVASTATIN
     Route: 065
  3. ATORVASTATIN [Suspect]
     Active Substance: ATORVASTATIN
     Route: 065
  4. ATORVASTATIN [Suspect]
     Active Substance: ATORVASTATIN
  5. SIMVASTATIN [Suspect]
     Active Substance: SIMVASTATIN
     Indication: Dyslipidaemia
  6. SIMVASTATIN [Suspect]
     Active Substance: SIMVASTATIN
  7. SIMVASTATIN [Suspect]
     Active Substance: SIMVASTATIN
     Route: 065
  8. SIMVASTATIN [Suspect]
     Active Substance: SIMVASTATIN
     Route: 065
  9. SIMVASTATIN [Suspect]
     Active Substance: SIMVASTATIN
  10. SIMVASTATIN [Suspect]
     Active Substance: SIMVASTATIN
  11. SIMVASTATIN [Suspect]
     Active Substance: SIMVASTATIN
     Route: 065
  12. SIMVASTATIN [Suspect]
     Active Substance: SIMVASTATIN
     Route: 065

REACTIONS (3)
  - Primary biliary cholangitis [Recovered/Resolved]
  - Autoimmune hepatitis [Recovered/Resolved]
  - Overlap syndrome [Recovered/Resolved]
